FAERS Safety Report 12485434 (Version 1)
Quarter: 2016Q2

REPORT INFORMATION
  Report Type: Spontaneous
  Country: US (occurrence: US)
  Receive Date: 20160621
  Receipt Date: 20160621
  Transmission Date: 20160815
  Serious: No
  Sender: FDA-Public Use
  Company Number: US-SA-2015SA096320

PATIENT
  Age: 54 Year
  Sex: Female
  Weight: 54.54 kg

DRUGS (14)
  1. CEREZYME [Suspect]
     Active Substance: IMIGLUCERASE
     Indication: LIPIDOSIS
     Dosage: DOSE:44.4 UNIT(S)/KILOGRAM BODYWEIGHT
     Route: 042
     Dates: start: 20100907
  2. EPIPEN [Concomitant]
     Active Substance: EPINEPHRINE
     Indication: ANAPHYLACTIC REACTION
     Dosage: AS DIRECTED
     Route: 030
     Dates: start: 20100907
  3. CLARITIN [Concomitant]
     Active Substance: LORATADINE
     Dosage: 10 MG/10 ML SYRUP (1 TSP ) AS NEEDED DOSE:1 TEASPOON(S)
     Dates: start: 20100323
  4. BREO ELLIPTA [Concomitant]
     Active Substance: FLUTICASONE FUROATE\VILANTEROL TRIFENATATE
     Dosage: 100-25MCG BLS
     Dates: start: 20150406
  5. SPIRIVA [Concomitant]
     Active Substance: TIOTROPIUM BROMIDE MONOHYDRATE
     Dosage: 2 PUFFS DAILY, 18 MCG CAP W/DEV DOSE:2 PUFF(S)
     Dates: start: 20150406
  6. SODIUM CHLORIDE. [Concomitant]
     Active Substance: SODIUM CHLORIDE
     Dosage: AS DIRECTED
     Route: 042
     Dates: start: 20100907
  7. WATER FOR INJECTION [Concomitant]
     Active Substance: WATER
     Dosage: AS DIRECTED
     Dates: start: 20100907
  8. MUCINEX [Concomitant]
     Active Substance: GUAIFENESIN
     Dosage: MUCINES ER600 MG
     Dates: start: 20140908
  9. NORMAL SALINE [Concomitant]
     Active Substance: SODIUM CHLORIDE
     Dosage: AS DIRECTED
     Route: 042
     Dates: start: 20100907
  10. OXYGEN. [Concomitant]
     Active Substance: OXYGEN
     Dosage: AS DIRECTED
     Dates: start: 20100907
  11. HEPARIN [Concomitant]
     Active Substance: HEPARIN SODIUM
     Dosage: 100 UNITS/ ML, AS DIRCTED
     Route: 042
     Dates: start: 20100907
  12. DUONEB [Concomitant]
     Active Substance: ALBUTEROL SULFATE\IPRATROPIUM BROMIDE
     Dosage: 0.5 MG-3MG/3ML, 1 VIAL
     Dates: start: 20140908
  13. CHANTIX [Concomitant]
     Active Substance: VARENICLINE TARTRATE
     Dosage: 1 MG
     Dates: start: 20140908
  14. SYMBICORT [Concomitant]
     Active Substance: BUDESONIDE\FORMOTEROL FUMARATE DIHYDRATE
     Dosage: 160-4.5 MCG HFA
     Dates: start: 20150603

REACTIONS (1)
  - Dyspnoea [Unknown]
